FAERS Safety Report 6569814-6 (Version None)
Quarter: 2010Q1

REPORT INFORMATION
  Report Type: 
  Country: None (occurrence: None)
  Receive Date: 20100204
  Receipt Date: 20091128
  Transmission Date: 20100710
  Serious: Yes (Other)
  Sender: FDA-Public Use
  Company Number: US-SANOFI-AVENTIS-2009SA009026

PATIENT
  Age: 27 Year
  Sex: Female

DRUGS (2)
  1. SOLOSTAR [Suspect]
     Dates: start: 20050101
  2. LANTUS [Suspect]
     Route: 058
     Dates: start: 20050101

REACTIONS (2)
  - BLOOD GLUCOSE INCREASED [None]
  - DEVICE MALFUNCTION [None]
